FAERS Safety Report 7014700 (Version 7)
Quarter: 2018Q2

REPORT INFORMATION
  Report Type: Report from Study
  Country: JP (occurrence: JP)
  Receive Date: 20090609
  Receipt Date: 20180420
  Transmission Date: 20180711
  Serious: Yes (Life-Threatening, Hospitalization)
  Sender: FDA-Public Use
  Company Number: JP-PFIZER INC-2009221885

PATIENT
  Age: 65 Year
  Sex: Female
  Weight: 45 kg

DRUGS (16)
  1. SUNITINIB MALATE. [Suspect]
     Active Substance: SUNITINIB MALATE
     Dosage: 37.5 MG, 1X/DAY, FOR 4 WEEKS AS SCHEDULED
     Route: 048
     Dates: start: 20090331
  2. THYRADIN S [Concomitant]
     Active Substance: LEVOTHYROXINE SODIUM
     Dosage: 75 UG, 1X/DAY
     Dates: start: 20090427, end: 20090715
  3. SUNITINIB MALATE. [Suspect]
     Active Substance: SUNITINIB MALATE
     Indication: GASTROINTESTINAL STROMAL TUMOUR
     Dosage: 50 MG, 1X/DAY
     Route: 048
     Dates: start: 20080814, end: 20090522
  4. PERDIPINE [Concomitant]
     Active Substance: NICARDIPINE HYDROCHLORIDE
     Dosage: UNK
     Dates: start: 20090523
  5. FERROMIA [Concomitant]
     Active Substance: SODIUM FERROUS CITRATE
     Dosage: 50 MG, 1X/DAY
     Route: 048
     Dates: start: 20090318
  6. FOLIAMIN [Concomitant]
     Active Substance: FOLIC ACID
     Dosage: 15 MG, 3X/DAY
     Route: 048
     Dates: start: 20090318, end: 20090715
  7. THYRADIN S [Concomitant]
     Active Substance: LEVOTHYROXINE SODIUM
     Dosage: 50 UG, 1X/DAY
     Route: 048
     Dates: start: 20090309, end: 20090426
  8. VOLTAREN [Concomitant]
     Active Substance: DICLOFENAC SODIUM
     Dosage: 25 MG, AS NEEDED
     Route: 054
     Dates: start: 20090511, end: 20090523
  9. MAGNESIUM OXIDE. [Concomitant]
     Active Substance: MAGNESIUM OXIDE
     Dosage: 0.3 G, 3X/DAY
     Route: 048
  10. SUNITINIB MALATE. [Suspect]
     Active Substance: SUNITINIB MALATE
     Dosage: 37.5 MG, 1X/DAY
     Route: 048
     Dates: start: 20090512, end: 20090522
  11. AZULON [Concomitant]
     Active Substance: GUAIAZULENE
     Dosage: UNK
     Dates: start: 20080827
  12. GASTER [Concomitant]
     Active Substance: FAMOTIDINE
     Indication: GASTRIC ULCER
     Dosage: 20 MG, 1X/DAY
     Route: 048
     Dates: start: 20060809
  13. RHYTHMY [Concomitant]
     Active Substance: RILMAZAFONE HYDROCHLORIDE
     Dosage: UNK
     Route: 048
     Dates: start: 20070328
  14. BERIZYM [Concomitant]
     Active Substance: CELLULASE\DIASTASE\LIPASE
     Indication: GASTROINTESTINAL STROMAL TUMOUR
     Dosage: 0.6 G, 3X/DAY
     Route: 048
  15. SUNITINIB MALATE. [Suspect]
     Active Substance: SUNITINIB MALATE
     Dosage: 50 MG, 1X/DAY, 4 WEEKS AS SCHEDULED
     Route: 048
     Dates: start: 20090129
  16. LAC B [Concomitant]
     Active Substance: BIFIDOBACTERIUM SPP.
     Indication: GASTROINTESTINAL STROMAL TUMOUR
     Dosage: 0.6 G, 3X/DAY
     Route: 048

REACTIONS (2)
  - Aneurysm ruptured [Recovering/Resolving]
  - Aneurysm [Recovering/Resolving]

NARRATIVE: CASE EVENT DATE: 20090522
